FAERS Safety Report 18351285 (Version 2)
Quarter: 2020Q4

REPORT INFORMATION
  Report Type: Spontaneous
  Country: FR (occurrence: FR)
  Receive Date: 20201006
  Receipt Date: 20201020
  Transmission Date: 20210114
  Serious: Yes (Hospitalization)
  Sender: FDA-Public Use
  Company Number: FR-MYLANLABS-2020M1084328

PATIENT
  Age: 89 Year
  Sex: Female
  Weight: 80 kg

DRUGS (4)
  1. VANCOMYCIN MYLAN [Suspect]
     Active Substance: VANCOMYCIN
     Indication: PYELONEPHRITIS
     Dosage: 1 GRAM, QD
     Route: 042
     Dates: start: 20200811, end: 20200814
  2. CLAMOXYL                           /00249602/ [Suspect]
     Active Substance: AMOXICILLIN
     Indication: PYELONEPHRITIS
     Dosage: 1500 MILLIGRAM, QD
     Route: 042
     Dates: start: 20200806, end: 20200810
  3. GENTAMICINE PANPHARMA [Suspect]
     Active Substance: GENTAMICIN
     Indication: PYELONEPHRITIS
     Dosage: 240 MILLIGRAM, TOTAL
     Route: 042
     Dates: start: 20200806, end: 20200806
  4. CEFTRIAXONE MYLAN [Suspect]
     Active Substance: CEFTRIAXONE
     Indication: PYELONEPHRITIS
     Dosage: 1 GRAM, QD
     Route: 042
     Dates: start: 20200804, end: 20200806

REACTIONS (2)
  - Confusional state [Recovered/Resolved]
  - Electroencephalogram abnormal [Recovered/Resolved]

NARRATIVE: CASE EVENT DATE: 20200810
